FAERS Safety Report 8954768 (Version 1)
Quarter: 2012Q4

REPORT INFORMATION
  Report Type: 
  Country: FR (occurrence: FR)
  Receive Date: 20121207
  Receipt Date: 20121207
  Transmission Date: 20130627
  Serious: Yes (Other)
  Sender: FDA-Public Use
  Company Number: FR-VIIV HEALTHCARE LIMITED-B0848212A

PATIENT
  Sex: Male

DRUGS (2)
  1. CELSENTRI [Suspect]
     Indication: HIV TEST POSITIVE
     Dosage: 300MG Twice per day
     Route: 048
     Dates: start: 20120410
  2. KIVEXA [Suspect]
     Indication: HIV TEST POSITIVE
     Dosage: 1TAB Per day
     Route: 048
     Dates: start: 20101008

REACTIONS (1)
  - Periarthritis [Not Recovered/Not Resolved]
